FAERS Safety Report 24883090 (Version 2)
Quarter: 2025Q1

REPORT INFORMATION
  Report Type: Spontaneous
  Country: CN (occurrence: CN)
  Receive Date: 20250124
  Receipt Date: 20250127
  Transmission Date: 20250409
  Serious: Yes (Life-Threatening)
  Sender: BAYER HEALTHCARE PHARMACEUTICALS INC.
  Company Number: CN-BAYER-2025A011300

PATIENT
  Age: 55 Year
  Sex: Male

DRUGS (10)
  1. MOXIFLOXACIN [Suspect]
     Active Substance: MOXIFLOXACIN
     Indication: Community acquired infection
     Route: 042
     Dates: start: 20230318
  2. LAMIVUDINE [Concomitant]
     Active Substance: LAMIVUDINE
     Indication: Antiviral treatment
     Route: 048
     Dates: end: 20230317
  3. LAMIVUDINE [Concomitant]
     Active Substance: LAMIVUDINE
     Indication: Antiviral treatment
     Route: 045
     Dates: start: 20230318
  4. TENOFOVIR DISOPROXIL FUMARATE [Concomitant]
     Active Substance: TENOFOVIR DISOPROXIL FUMARATE
     Indication: Antiviral treatment
     Route: 048
     Dates: end: 20230317
  5. TENOFOVIR DISOPROXIL FUMARATE [Concomitant]
     Active Substance: TENOFOVIR DISOPROXIL FUMARATE
     Indication: Antiviral treatment
     Route: 045
     Dates: start: 20230318
  6. EFAVIRENZ [Concomitant]
     Active Substance: EFAVIRENZ
     Route: 048
     Dates: end: 20230317
  7. EFAVIRENZ [Concomitant]
     Active Substance: EFAVIRENZ
     Route: 045
     Dates: start: 20230318
  8. LEVOTHYROXINE SODIUM [Concomitant]
     Active Substance: LEVOTHYROXINE SODIUM
     Indication: Thyroid hormone replacement therapy
     Route: 048
  9. HERBALS [Concomitant]
     Active Substance: HERBALS
     Dates: start: 20230317
  10. CEPHRADINE [Concomitant]
     Active Substance: CEPHRADINE
     Route: 048
     Dates: start: 20230317

REACTIONS (5)
  - Anaphylactic shock [Recovering/Resolving]
  - Cardiac arrest [Recovering/Resolving]
  - Respiratory arrest [Recovering/Resolving]
  - Product use in unapproved indication [None]
  - Product prescribing issue [None]

NARRATIVE: CASE EVENT DATE: 20230318
